FAERS Safety Report 8169063-4 (Version None)
Quarter: 2012Q1

REPORT INFORMATION
  Report Type: 
  Country: None (occurrence: None)
  Receive Date: 20120227
  Receipt Date: 20120130
  Transmission Date: 20120608
  Serious: Yes (Other)
  Sender: FDA-Public Use
  Company Number: FR-PFIZER INC-K201001515

PATIENT
  Age: 48 Year
  Sex: Female
  Weight: 73.8 kg

DRUGS (4)
  1. LEVOTHYROXINE [Concomitant]
     Dosage: UNK
     Dates: start: 20100803
  2. ALTACE [Suspect]
     Dosage: UNK
     Route: 048
     Dates: start: 20101206
  3. ALTACE [Suspect]
     Dosage: UNK
     Route: 048
     Dates: start: 20101118, end: 20101201
  4. OILATUM [Concomitant]
     Dosage: UNK
     Dates: start: 20100803

REACTIONS (3)
  - THIRST [None]
  - PRURITUS [None]
  - DRY THROAT [None]
